FAERS Safety Report 20483870 (Version 1)
Quarter: 2022Q1

REPORT INFORMATION
  Report Type: Spontaneous
  Country: AU (occurrence: AU)
  Receive Date: 20220217
  Receipt Date: 20220217
  Transmission Date: 20220423
  Serious: Yes (Other)
  Sender: FDA-Public Use
  Company Number: AU-AMGEN-AUSSP2022025147

PATIENT
  Age: 85 Year
  Sex: Male

DRUGS (2)
  1. PROLIA [Suspect]
     Active Substance: DENOSUMAB
     Indication: Osteoporosis
     Dosage: UNK UNK, Q6MO
     Route: 065
     Dates: start: 2021
  2. PROLIA [Suspect]
     Active Substance: DENOSUMAB
     Indication: Injury

REACTIONS (1)
  - Thoracic vertebral fracture [Unknown]
